FAERS Safety Report 24560116 (Version 2)
Quarter: 2024Q4

REPORT INFORMATION
  Report Type: Spontaneous
  Country: FR (occurrence: FR)
  Receive Date: 20241029
  Receipt Date: 20241226
  Transmission Date: 20250114
  Serious: Yes (Disabling, Other)
  Sender: SANOFI AVENTIS
  Company Number: FR-SA-2024SA308611

PATIENT
  Age: 32 Year
  Sex: Male

DRUGS (11)
  1. MOZOBIL [Suspect]
     Active Substance: PLERIXAFOR
     Indication: Papilloma viral infection
     Dosage: 0.01 MG/KG, BID
     Route: 058
     Dates: start: 20160605, end: 2016
  2. MOZOBIL [Suspect]
     Active Substance: PLERIXAFOR
     Indication: Combined immunodeficiency
     Dosage: 0.03 MG/KG
     Route: 058
     Dates: start: 20160715, end: 2016
  3. MOZOBIL [Suspect]
     Active Substance: PLERIXAFOR
     Dosage: 0.050MG/KG
     Route: 058
     Dates: start: 20160805, end: 2016
  4. MOZOBIL [Suspect]
     Active Substance: PLERIXAFOR
     Dosage: 0.1 MG/KG
     Route: 058
     Dates: start: 20160919, end: 20161210
  5. MOZOBIL [Suspect]
     Active Substance: PLERIXAFOR
     Dosage: 20 MG, QD
     Route: 058
     Dates: start: 20230727
  6. MOZOBIL [Suspect]
     Active Substance: PLERIXAFOR
     Dosage: 0.07 MG/KG
     Route: 058
     Dates: start: 20230427, end: 20230504
  7. MOZOBIL [Suspect]
     Active Substance: PLERIXAFOR
     Dosage: 0.14 MG/KG
     Route: 058
     Dates: start: 20230505, end: 20230525
  8. MOZOBIL [Suspect]
     Active Substance: PLERIXAFOR
     Dosage: 0.14 MG/KG
     Route: 058
     Dates: start: 20231020, end: 20231206
  9. MOZOBIL [Suspect]
     Active Substance: PLERIXAFOR
     Dosage: 0.29 MG/KG
     Route: 058
     Dates: start: 20231206, end: 20240528
  10. MOZOBIL [Suspect]
     Active Substance: PLERIXAFOR
     Dosage: 0.22 MG/KG, QD
     Route: 058
     Dates: start: 20240528, end: 20240810
  11. IMIQUIMOD [Concomitant]
     Active Substance: IMIQUIMOD
     Indication: Anogenital warts
     Dosage: UNK
     Dates: start: 201611

REACTIONS (5)
  - Deafness neurosensory [Not Recovered/Not Resolved]
  - Condition aggravated [Not Recovered/Not Resolved]
  - Tinnitus [Not Recovered/Not Resolved]
  - Anal squamous cell carcinoma [Unknown]
  - Off label use [Unknown]

NARRATIVE: CASE EVENT DATE: 20191121
